FAERS Safety Report 15523836 (Version 4)
Quarter: 2019Q2

REPORT INFORMATION
  Report Type: Spontaneous
  Country: US (occurrence: US)
  Receive Date: 20181018
  Receipt Date: 20190418
  Transmission Date: 20190711
  Serious: No
  Sender: FDA-Public Use
  Company Number: US-AMGEN-USASP2018144416

PATIENT
  Age: 63 Year
  Sex: Male

DRUGS (2)
  1. ENBREL [Suspect]
     Active Substance: ETANERCEPT
     Indication: PRODUCT USED FOR UNKNOWN INDICATION
     Dosage: UNK
     Route: 065
  2. HUMIRA [Suspect]
     Active Substance: ADALIMUMAB
     Indication: PSORIASIS
     Dosage: 40 MILLIGRAM, Q2WK
     Route: 058
     Dates: start: 20180731

REACTIONS (9)
  - Erythema [Unknown]
  - Malaise [Unknown]
  - Rash macular [Unknown]
  - Pruritus [Unknown]
  - Psoriasis [Recovering/Resolving]
  - Dyspnoea [Unknown]
  - Skin irritation [Unknown]
  - Adjustment disorder with depressed mood [Unknown]
  - Stress [Unknown]

NARRATIVE: CASE EVENT DATE: 2018
